FAERS Safety Report 5889994-5 (Version None)
Quarter: 2008Q3

REPORT INFORMATION
  Report Type: 
  Country: None (occurrence: None)
  Receive Date: 20080919
  Receipt Date: 20080909
  Transmission Date: 20090109
  Serious: Yes (Death, Hospitalization)
  Sender: FDA-Public Use
  Company Number: US-PFIZER INC-2008012686

PATIENT
  Sex: Male
  Weight: 52.2 kg

DRUGS (1)
  1. SUTENT [Suspect]
     Indication: RENAL CELL CARCINOMA
     Route: 048
     Dates: start: 20061122, end: 20080215

REACTIONS (3)
  - ASTHENIA [None]
  - DEATH [None]
  - DEHYDRATION [None]
